FAERS Safety Report 21245496 (Version 1)
Quarter: 2022Q3

REPORT INFORMATION
  Report Type: Spontaneous
  Country: NL (occurrence: NL)
  Receive Date: 20220824
  Receipt Date: 20220824
  Transmission Date: 20221026
  Serious: Yes (Death, Life-Threatening, Hospitalization, Other)
  Sender: FDA-Public Use
  Company Number: NL-AMGEN-NLDSP2022143602

PATIENT

DRUGS (1)
  1. PANITUMUMAB [Suspect]
     Active Substance: PANITUMUMAB
     Indication: Colorectal cancer metastatic
     Dosage: UNK
     Route: 065

REACTIONS (10)
  - Death [Fatal]
  - Post procedural complication [Fatal]
  - Disease progression [Fatal]
  - Colorectal cancer metastatic [Fatal]
  - Pulmonary embolism [Fatal]
  - Portal vein thrombosis [Fatal]
  - Multiple organ dysfunction syndrome [Fatal]
  - Abdominal abscess [Fatal]
  - Cardiopulmonary failure [Fatal]
  - Hospitalisation [Unknown]
